FAERS Safety Report 7330989-2 (Version None)
Quarter: 2011Q1

REPORT INFORMATION
  Report Type: 
  Country: None (occurrence: None)
  Receive Date: 20110304
  Receipt Date: 20110223
  Transmission Date: 20110831
  Serious: Yes (Hospitalization)
  Sender: FDA-Public Use
  Company Number: BR-US-EMD SERONO, INC.-7044281

PATIENT
  Sex: Female

DRUGS (8)
  1. REBIF [Suspect]
     Dates: start: 20110217
  2. ACETAMINOPHEN [Concomitant]
  3. AZATHIOPRIN [Concomitant]
  4. CAPOTEN [Concomitant]
  5. FLUOXETINE [Concomitant]
  6. BROMOPRIDE [Concomitant]
  7. MANTIDAN [Concomitant]
  8. REBIF [Suspect]
     Indication: RELAPSING-REMITTING MULTIPLE SCLEROSIS
     Dates: start: 20100816, end: 20110217

REACTIONS (1)
  - CENTRAL NERVOUS SYSTEM LESION [None]
